FAERS Safety Report 10593025 (Version 1)
Quarter: 2014Q4

REPORT INFORMATION
  Report Type: Spontaneous
  Country: US (occurrence: US)
  Receive Date: 20141119
  Receipt Date: 20141119
  Transmission Date: 20150529
  Serious: Yes (Other)
  Sender: FDA-Public Use
  Company Number: US-JNJFOC-20141109884

PATIENT
  Age: 28 Year
  Sex: Male

DRUGS (3)
  1. LITHIUM [Concomitant]
     Active Substance: LITHIUM CARBONATE
     Route: 065
  2. COGENTIN [Concomitant]
     Active Substance: BENZTROPINE MESYLATE
     Route: 065
  3. INVEGA SUSTENNA [Suspect]
     Active Substance: PALIPERIDONE PALMITATE
     Indication: PRODUCT USED FOR UNKNOWN INDICATION
     Route: 030

REACTIONS (1)
  - Seizure [Unknown]

NARRATIVE: CASE EVENT DATE: 20141025
